FAERS Safety Report 7270496-9 (Version None)
Quarter: 2011Q1

REPORT INFORMATION
  Report Type: 
  Country: None (occurrence: None)
  Receive Date: 20110202
  Receipt Date: 20110124
  Transmission Date: 20110831
  Serious: Yes (Other)
  Sender: FDA-Public Use
  Company Number: US-ELI_LILLY_AND_COMPANY-US201101005956

PATIENT
  Sex: Male

DRUGS (2)
  1. CIALIS [Suspect]
     Indication: ERECTILE DYSFUNCTION
  2. SILDENAFIL [Concomitant]
     Indication: ERECTILE DYSFUNCTION

REACTIONS (4)
  - BLADDER OBSTRUCTION [None]
  - DYSURIA [None]
  - PROSTATOMEGALY [None]
  - PROSTATIC OBSTRUCTION [None]
